FAERS Safety Report 8078294-3 (Version None)
Quarter: 2012Q1

REPORT INFORMATION
  Report Type: 
  Country: None (occurrence: None)
  Receive Date: 20120123
  Receipt Date: 20120117
  Transmission Date: 20120608
  Serious: No
  Sender: FDA-Public Use
  Company Number: 2011-000213

PATIENT
  Age: 57 Year
  Sex: Female
  Weight: 56 kg

DRUGS (3)
  1. LEVOTHYROXINE SODIUM [Concomitant]
  2. ACTONEL [Suspect]
     Indication: OSTEOPOROSIS
     Dosage: 75 MG TWO DOSAGE FORMS CYCLIC DAILY PER MONTH, ORAL
     Route: 048
     Dates: start: 20111102, end: 20111102
  3. ACTONEL [Suspect]
     Indication: OSTEOPOROSIS
     Dosage: 35 MG UNKNOWN, ORAL
     Route: 048

REACTIONS (5)
  - RASH PUSTULAR [None]
  - ANGIOEDEMA [None]
  - ABDOMINAL PAIN [None]
  - DIARRHOEA [None]
  - SWELLING FACE [None]
